FAERS Safety Report 10867250 (Version 2)
Quarter: 2015Q2

REPORT INFORMATION
  Report Type: Report from Study
  Country: FR (occurrence: FR)
  Receive Date: 20150225
  Receipt Date: 20150516
  Transmission Date: 20150821
  Serious: Yes (Death, Hospitalization, Other)
  Sender: FDA-Public Use
  Company Number: PHHY2015FR021052

PATIENT
  Age: 62 Year
  Sex: Male

DRUGS (4)
  1. MYFORTIC [Suspect]
     Active Substance: MYCOPHENOLATE SODIUM
     Indication: RENAL TRANSPLANT
     Dosage: 360 MG, BID
     Route: 048
  2. PROGRAF [Concomitant]
     Active Substance: TACROLIMUS\TACROLIMUS ANHYDROUS
     Indication: RENAL TRANSPLANT
     Dosage: 1 MG, BID
     Route: 065
     Dates: start: 20130813
  3. CERTICAN [Suspect]
     Active Substance: EVEROLIMUS
     Indication: RENAL TRANSPLANT
     Dosage: 1.5 MG, BID
     Route: 048
     Dates: start: 20110706, end: 20111124
  4. CORTANCYL [Concomitant]
     Active Substance: PREDNISONE
     Indication: RENAL TRANSPLANT
     Dosage: 5 MG, UNK
     Route: 065
     Dates: start: 20130125

REACTIONS (14)
  - Septic shock [Fatal]
  - Vascular occlusion [Recovering/Resolving]
  - Biliary neoplasm [Not Recovered/Not Resolved]
  - Pancreatitis acute [Recovered/Resolved with Sequelae]
  - Multi-organ failure [Fatal]
  - Acute kidney injury [Not Recovered/Not Resolved]
  - Metastases to peritoneum [Unknown]
  - Alveolitis [Recovering/Resolving]
  - Urinary tract infection [Recovering/Resolving]
  - Enterococcal sepsis [Recovered/Resolved]
  - Rectal haemorrhage [Recovering/Resolving]
  - Escherichia sepsis [Recovering/Resolving]
  - Cholangitis [Recovering/Resolving]
  - Adenocarcinoma [Unknown]

NARRATIVE: CASE EVENT DATE: 201405
